FAERS Safety Report 8259474-0 (Version None)
Quarter: 2012Q2

REPORT INFORMATION
  Report Type: 
  Country: None (occurrence: None)
  Receive Date: 20120404
  Receipt Date: 20120329
  Transmission Date: 20120825
  Serious: Yes (Life-Threatening)
  Sender: FDA-Public Use
  Company Number: IT-SANOFI-AVENTIS-2012SA021534

PATIENT
  Age: 64 Year
  Sex: Male

DRUGS (1)
  1. OXALIPLATIN [Suspect]
     Dosage: DOSE: 100 MG TOTAL
     Route: 042
     Dates: start: 20120307, end: 20120307

REACTIONS (1)
  - TREMOR [None]
